FAERS Safety Report 16010580 (Version 9)
Quarter: 2019Q3

REPORT INFORMATION
  Report Type: Spontaneous
  Country: US (occurrence: US)
  Receive Date: 20190225
  Receipt Date: 20190910
  Transmission Date: 20191004
  Serious: No
  Sender: FDA-Public Use
  Company Number: US-PFIZER INC-2019069916

PATIENT
  Age: 48 Year
  Sex: Female
  Weight: 76 kg

DRUGS (5)
  1. LYRICA [Suspect]
     Active Substance: PREGABALIN
     Indication: NERVE INJURY
     Dosage: 75 MG, TWICE A DAY
     Route: 048
  2. LYRICA [Suspect]
     Active Substance: PREGABALIN
     Indication: GAIT DISTURBANCE
     Dosage: 4 DF, UNK (2 IN THE MORNING AND 2 AT NIGHT)
     Route: 048
     Dates: start: 2019, end: 20190710
  3. LYRICA [Suspect]
     Active Substance: PREGABALIN
     Dosage: 75 MG, 4X/DAY(300MG IT^S 4 OF THE 75MG A DAY)
     Route: 048
     Dates: start: 2019
  4. LYRICA [Suspect]
     Active Substance: PREGABALIN
     Indication: BACK PAIN
     Dosage: 150 MG, 2X/DAY (75MG TWO CAPSULES TWICE A DAY)
     Route: 048
     Dates: start: 2018
  5. LYRICA [Suspect]
     Active Substance: PREGABALIN
     Indication: NERVE COMPRESSION
     Dosage: 75 MG, 3X/DAY
     Route: 048
     Dates: start: 20190302, end: 2019

REACTIONS (9)
  - Intentional product misuse [Unknown]
  - Crying [Recovered/Resolved]
  - Drug ineffective [Unknown]
  - Feeling abnormal [Unknown]
  - Depression [Recovered/Resolved]
  - Abdominal discomfort [Unknown]
  - Asthenia [Unknown]
  - Ligament sprain [Unknown]
  - Fall [Unknown]

NARRATIVE: CASE EVENT DATE: 201902
